FAERS Safety Report 4284417-4 (Version None)
Quarter: 2004Q1

REPORT INFORMATION
  Report Type: 
  Country: None (occurrence: None)
  Receive Date: 20040203
  Receipt Date: 20031023
  Transmission Date: 20041129
  Serious: Yes (Death)
  Sender: FDA-Public Use
  Company Number: PHBS2003CO11831

PATIENT
  Age: 60 Year
  Sex: Female

DRUGS (4)
  1. COMTESS #OR [Concomitant]
     Dates: start: 20030101
  2. TRILEPTAL [Suspect]
     Indication: NEUROPATHIC PAIN
     Dosage: 600 MG/DAY
     Route: 048
  3. OMEPRAZOLE [Concomitant]
     Route: 065
  4. SINEMET [Concomitant]
     Indication: PARKINSON'S DISEASE
     Route: 065

REACTIONS (1)
  - CARDIAC ARREST [None]
